FAERS Safety Report 5738571-5 (Version None)
Quarter: 2008Q2

REPORT INFORMATION
  Report Type: 
  Country: None (occurrence: None)
  Receive Date: 20080513
  Receipt Date: 20080513
  Transmission Date: 20081010
  Serious: Yes (Death)
  Sender: FDA-Public Use
  Company Number: 2008S1006003

PATIENT
  Age: 48 Year
  Sex: Male

DRUGS (9)
  1. TENOFOVIR DISOPROXIL FUMARATE [Suspect]
     Indication: HIV INFECTION
  2. KALETRA /01506501/ (KALETRA /01506501/) (CON.) [Concomitant]
  3. DIDANOSINE (DIDANOSINE) (CON.) [Concomitant]
  4. FUROSEMIDE (FUROSEMIDE) (CON.) [Concomitant]
  5. SPIRONOLACTONE (SPIRONOLACTONE) (CON.) [Concomitant]
  6. COTRIMOXAZOLE (BACTRIM HYDROMORPHONE (HYDROMORPHONE) (CON.) [Concomitant]
  7. QUININE (QUININE) (CON.) [Concomitant]
  8. OMEPRAZOLE (OMEPRAZOLE) (CON.) [Concomitant]
  9. DIMENHYDRINATE (DIMENHYDRINATE) (CON.) [Concomitant]

REACTIONS (1)
  - RENAL TUBULAR NECROSIS [None]
